FAERS Safety Report 14971441 (Version 2)
Quarter: 2018Q2

REPORT INFORMATION
  Report Type: Not Available
  Country: US (occurrence: US)
  Receive Date: 20180604
  Receipt Date: 20180620
  Transmission Date: 20180711
  Serious: No
  Sender: FDA-Public Use
  Company Number: US-NEUROCRINE BIOSCIENCES INC.-2018NBI01541

PATIENT
  Sex: Female

DRUGS (2)
  1. INGREZZA [Suspect]
     Active Substance: VALBENAZINE
     Indication: TARDIVE DYSKINESIA
     Route: 048
  2. INGREZZA [Suspect]
     Active Substance: VALBENAZINE
     Route: 048

REACTIONS (5)
  - Confusional state [Unknown]
  - Feeling abnormal [Recovered/Resolved]
  - Dyskinesia [Unknown]
  - Restlessness [Unknown]
  - Headache [Unknown]
